FAERS Safety Report 6273711-3 (Version None)
Quarter: 2009Q3

REPORT INFORMATION
  Report Type: 
  Country: None (occurrence: None)
  Receive Date: 20090720
  Receipt Date: 20090710
  Transmission Date: 20100115
  Serious: Yes (Hospitalization, Other)
  Sender: FDA-Public Use
  Company Number: US-AMGEN-QUU355270

PATIENT
  Sex: Female

DRUGS (1)
  1. ENBREL [Suspect]
     Indication: RHEUMATOID ARTHRITIS
     Route: 058
     Dates: start: 20090207

REACTIONS (11)
  - ARTHRALGIA [None]
  - BACK PAIN [None]
  - BALANCE DISORDER [None]
  - CONTUSION [None]
  - DEPRESSED MOOD [None]
  - FALL [None]
  - JOINT SPRAIN [None]
  - JOINT SWELLING [None]
  - MENISCUS LESION [None]
  - PAIN [None]
  - RHEUMATOID ARTHRITIS [None]
